FAERS Safety Report 18542840 (Version 1)
Quarter: 2020Q4

REPORT INFORMATION
  Report Type: Spontaneous
  Country: US (occurrence: US)
  Receive Date: 20201124
  Receipt Date: 20201124
  Transmission Date: 20210114
  Serious: No
  Sender: FDA-Public Use
  Company Number: US-SA-2020SA330793

PATIENT

DRUGS (1)
  1. DUPIXENT [Suspect]
     Active Substance: DUPILUMAB
     Indication: DERMATITIS ATOPIC
     Dosage: 300 MG, QOW
     Route: 058
     Dates: end: 2020

REACTIONS (6)
  - Vitiligo [Unknown]
  - Pruritus [Unknown]
  - Skin discolouration [Unknown]
  - Muscle disorder [Unknown]
  - Swelling [Unknown]
  - Skin tightness [Unknown]
